FAERS Safety Report 8476392-3 (Version None)
Quarter: 2012Q2

REPORT INFORMATION
  Report Type: 
  Country: None (occurrence: None)
  Receive Date: 20120628
  Receipt Date: 20120620
  Transmission Date: 20120825
  Serious: Yes (Hospitalization)
  Sender: FDA-Public Use
  Company Number: US-JNJFOC-20120606973

PATIENT
  Sex: Female
  Weight: 61.6 kg

DRUGS (8)
  1. MULTI-VITAMINS [Concomitant]
  2. AMOXICILLIN [Suspect]
     Indication: PRODUCT USED FOR UNKNOWN INDICATION
  3. PROBIOTICS [Concomitant]
  4. CALCIUM CARBONATE [Concomitant]
  5. ANTIBIOTICS NOS [Suspect]
     Indication: INFLAMMATORY BOWEL DISEASE
  6. INFLIXIMAB, RECOMBINANT [Suspect]
     Indication: CROHN'S DISEASE
     Route: 042
     Dates: start: 20081202
  7. HUMIRA [Concomitant]
     Dates: start: 20090903
  8. LOPERAMIDE [Concomitant]

REACTIONS (3)
  - DEHYDRATION [None]
  - BLOOD ELECTROLYTES ABNORMAL [None]
  - CROHN'S DISEASE [None]
